FAERS Safety Report 5517637-9 (Version None)
Quarter: 2007Q4

REPORT INFORMATION
  Report Type: 
  Country: None (occurrence: None)
  Receive Date: 20071114
  Receipt Date: 20071108
  Transmission Date: 20080405
  Serious: Yes (Hospitalization)
  Sender: FDA-Public Use
  Company Number: SE-ROXANE LABORATORIES, INC-2007-BP-24216RO

PATIENT
  Age: 9 Year
  Sex: Male

DRUGS (8)
  1. CYCLOPHOSPHAMIDE [Suspect]
     Indication: BONE MARROW CONDITIONING REGIMEN
  2. METHOTREXATE [Suspect]
     Indication: PROPHYLAXIS AGAINST GRAFT VERSUS HOST DISEASE
  3. PREDNISONE TAB [Suspect]
     Indication: ACUTE GRAFT VERSUS HOST DISEASE
  4. CYCLOSPORINE [Suspect]
     Indication: PROPHYLAXIS AGAINST GRAFT VERSUS HOST DISEASE
  5. IMMUNE GLOBULIN INTRAVENOUS (HUMAN) [Concomitant]
     Route: 042
  6. NEUPOGEN [Concomitant]
  7. CASPOFUNGIN [Concomitant]
     Indication: ANTIFUNGAL PROPHYLAXIS
  8. PLATELETS [Concomitant]

REACTIONS (10)
  - ACUTE GRAFT VERSUS HOST DISEASE [None]
  - CHRONIC GRAFT VERSUS HOST DISEASE [None]
  - DRUG INEFFECTIVE [None]
  - HAEMOLYSIS [None]
  - HAEMOLYTIC URAEMIC SYNDROME [None]
  - HYPERTENSION [None]
  - RASH MACULO-PAPULAR [None]
  - RENAL FAILURE [None]
  - SEPSIS [None]
  - TOXIC EPIDERMAL NECROLYSIS [None]
